FAERS Safety Report 26107762 (Version 1)
Quarter: 2025Q4

REPORT INFORMATION
  Report Type: Spontaneous
  Country: US (occurrence: None)
  Receive Date: 20251130
  Receipt Date: 20251130
  Transmission Date: 20260118
  Serious: Yes (Hospitalization, Disabling)
  Sender: FDA-CTU
  Company Number: None

PATIENT
  Age: 27 Year
  Sex: Male
  Weight: 78.75 kg

DRUGS (3)
  1. ESCITALOPRAM [Suspect]
     Active Substance: ESCITALOPRAM OXALATE
     Indication: Anxiety
     Dosage: 27 TABLET(S) ORAL
     Route: 048
     Dates: start: 20250827, end: 20250828
  2. ESCITALOPRAM [Suspect]
     Active Substance: ESCITALOPRAM OXALATE
     Indication: Depression
  3. DOXYLAMINE SUCCINATE [Concomitant]
     Active Substance: DOXYLAMINE SUCCINATE

REACTIONS (9)
  - Euphoric mood [None]
  - Halo vision [None]
  - Mydriasis [None]
  - Vision blurred [None]
  - Motor dysfunction [None]
  - Muscular weakness [None]
  - Burning sensation [None]
  - Blood pressure increased [None]
  - Musculoskeletal stiffness [None]

NARRATIVE: CASE EVENT DATE: 20250828
